FAERS Safety Report 4288810-5 (Version None)
Quarter: 2004Q1

REPORT INFORMATION
  Report Type: 
  Country: None (occurrence: None)
  Receive Date: 20040206
  Receipt Date: 20040127
  Transmission Date: 20041129
  Serious: Yes (Hospitalization)
  Sender: FDA-Public Use
  Company Number: KDL065005

PATIENT
  Age: 62 Year
  Sex: Male

DRUGS (1)
  1. PROCRIT [Suspect]
     Indication: RENAL FAILURE CHRONIC
     Dosage: 8000 U, 3 IN 1 WEEKS
     Dates: start: 20030301

REACTIONS (1)
  - GENERALISED OEDEMA [None]
